FAERS Safety Report 14779785 (Version 1)
Quarter: 2018Q2

REPORT INFORMATION
  Report Type: Report from Study
  Country: US (occurrence: US)
  Receive Date: 20180419
  Receipt Date: 20180419
  Transmission Date: 20180711
  Serious: Yes (Death, Hospitalization)
  Sender: FDA-Public Use
  Company Number: US-JNJFOC-20180414211

PATIENT
  Age: 32 Year
  Sex: Female

DRUGS (21)
  1. FOLIC ACID. [Concomitant]
     Active Substance: FOLIC ACID
  2. ACETYLCYSTEINE. [Concomitant]
     Active Substance: ACETYLCYSTEINE
  3. FAMCICLOVIR. [Concomitant]
     Active Substance: FAMCICLOVIR
  4. ESTRADIOL. [Concomitant]
     Active Substance: ESTRADIOL
  5. FISH OIL W/TOCOPHEROL [Concomitant]
  6. IMBRUVICA [Suspect]
     Active Substance: IBRUTINIB
     Indication: GRAFT VERSUS HOST DISEASE
     Route: 048
     Dates: start: 20171220, end: 20180329
  7. CALCIUM [Concomitant]
     Active Substance: CALCIUM
  8. DEXAMETHASONE. [Concomitant]
     Active Substance: DEXAMETHASONE
  9. VITAMIN D [Concomitant]
     Active Substance: CHOLECALCIFEROL
  10. ATIVAN [Concomitant]
     Active Substance: LORAZEPAM
  11. ZOFRAN [Concomitant]
     Active Substance: ONDANSETRON HYDROCHLORIDE
  12. POTASSIUM [Concomitant]
     Active Substance: POTASSIUM
  13. MAGNESIUM [Concomitant]
     Active Substance: MAGNESIUM
  14. PREDNISONE. [Concomitant]
     Active Substance: PREDNISONE
  15. SINGULAIR [Concomitant]
     Active Substance: MONTELUKAST SODIUM
  16. URSODIOL. [Concomitant]
     Active Substance: URSODIOL
  17. PRILOSEC [Concomitant]
     Active Substance: OMEPRAZOLE MAGNESIUM
  18. ESTROGEN [Concomitant]
     Active Substance: ESTROGENS
  19. IMBRUVICA [Suspect]
     Active Substance: IBRUTINIB
     Indication: GRAFT VERSUS HOST DISEASE
     Route: 048
     Dates: start: 20180118
  20. LASIX [Concomitant]
     Active Substance: FUROSEMIDE
  21. PROGESTERONE. [Concomitant]
     Active Substance: PROGESTERONE

REACTIONS (4)
  - Death [Fatal]
  - Arteriosclerosis coronary artery [Unknown]
  - Ventricular tachycardia [Unknown]
  - Disease progression [Unknown]

NARRATIVE: CASE EVENT DATE: 20180322
